FAERS Safety Report 7419239-6 (Version None)
Quarter: 2011Q2

REPORT INFORMATION
  Report Type: 
  Country: None (occurrence: None)
  Receive Date: 20110415
  Receipt Date: 20110406
  Transmission Date: 20111010
  Serious: Yes (Other)
  Sender: FDA-Public Use
  Company Number: TW-ASTRAZENECA-2011SE19400

PATIENT
  Age: 71 Year
  Sex: Male

DRUGS (3)
  1. QUETIAPINE [Suspect]
     Route: 048
  2. RISPERIDONE [Concomitant]
     Indication: PSYCHOTIC DISORDER
     Dosage: 25 MG/VIAL INJECTION EVERY 2 WEEKS
  3. QUETIAPINE [Suspect]
     Indication: PSYCHOTIC DISORDER
     Route: 048

REACTIONS (2)
  - DYSURIA [None]
  - PLEUROTHOTONUS [None]
